FAERS Safety Report 24850088 (Version 1)
Quarter: 2025Q1

REPORT INFORMATION
  Report Type: Spontaneous
  Country: SE (occurrence: SE)
  Receive Date: 20250116
  Receipt Date: 20250116
  Transmission Date: 20250408
  Serious: Yes (Hospitalization, Disabling)
  Sender: JOHNSON AND JOHNSON
  Company Number: None

PATIENT
  Age: 51 Year
  Sex: Female
  Weight: 110 kg

DRUGS (2)
  1. TOPIRAMATE [Suspect]
     Active Substance: TOPIRAMATE
     Indication: Bipolar disorder
     Dosage: 1 TABLETT/ DAG MORGON
     Route: 048
     Dates: start: 20240418, end: 20240806
  2. TOPIRAMATE [Suspect]
     Active Substance: TOPIRAMATE
     Indication: Psoriasis

REACTIONS (20)
  - Dermatitis [Recovered/Resolved]
  - Duodenal ulcer [Unknown]
  - Hepatic enzyme increased [Unknown]
  - Osteitis [Recovering/Resolving]
  - Oesophagitis [Unknown]
  - Bursitis [Recovered/Resolved with Sequelae]
  - Hyperhidrosis [Recovered/Resolved]
  - Fatigue [Not Recovered/Not Resolved]
  - Dyspnoea exertional [Not Recovered/Not Resolved]
  - Stomatitis [Recovering/Resolving]
  - Abdominal distension [Not Recovered/Not Resolved]
  - Increased tendency to bruise [Not Recovered/Not Resolved]
  - Dysgeusia [Recovered/Resolved]
  - Tongue blistering [Recovering/Resolving]
  - Nausea [Not Recovered/Not Resolved]
  - Gait disturbance [Not Recovered/Not Resolved]
  - Decreased appetite [Not Recovered/Not Resolved]
  - Glossitis [Recovering/Resolving]
  - Abdominal pain [Unknown]
  - Constipation [Not Recovered/Not Resolved]

NARRATIVE: CASE EVENT DATE: 20240101
